FAERS Safety Report 4883148-7 (Version None)
Quarter: 2006Q1

REPORT INFORMATION
  Report Type: 
  Country: None (occurrence: None)
  Receive Date: 20060118
  Receipt Date: 20051220
  Transmission Date: 20060701
  Serious: Yes (Hospitalization)
  Sender: FDA-Public Use
  Company Number: PHHO2005SE19717

PATIENT
  Age: 65 Year
  Sex: Male

DRUGS (1)
  1. SANDIMMUNE [Suspect]
     Indication: LUNG TRANSPLANT
     Dates: start: 20050120

REACTIONS (2)
  - IMPAIRED HEALING [None]
  - SKIN ULCER [None]
